FAERS Safety Report 9215622 (Version 1)
Quarter: 2013Q2

REPORT INFORMATION
  Report Type: Spontaneous
  Country: GB (occurrence: GB)
  Receive Date: 20130408
  Receipt Date: 20130408
  Transmission Date: 20140414
  Serious: Yes (Death)
  Sender: FDA-Public Use
  Company Number: GB-RANBAXY-2013R1-66992

PATIENT
  Age: 39 Year
  Sex: Male

DRUGS (1)
  1. SUMATRIPTAN [Suspect]
     Indication: MIGRAINE
     Dosage: UNK
     Route: 048

REACTIONS (1)
  - Cerebellar infarction [Fatal]
